FAERS Safety Report 7668010-9 (Version None)
Quarter: 2011Q3

REPORT INFORMATION
  Report Type: 
  Country: None (occurrence: None)
  Receive Date: 20110808
  Receipt Date: 20110728
  Transmission Date: 20111222
  Serious: No
  Sender: FDA-Public Use
  Company Number: US-PFIZER INC-2011177445

PATIENT
  Sex: Female

DRUGS (5)
  1. FLECTOR [Suspect]
     Dosage: UNK
  2. NEURONTIN [Suspect]
     Dosage: 300 MG, 1X/DAY
  3. VICODIN [Suspect]
  4. CELEBREX [Suspect]
     Dosage: UNK (100 TO 200 MG)
  5. CELEBREX [Suspect]
     Dosage: 200 MG, UNK

REACTIONS (1)
  - NO ADVERSE EVENT [None]
